FAERS Safety Report 5664036-5 (Version None)
Quarter: 2008Q1

REPORT INFORMATION
  Report Type: 
  Country: None (occurrence: None)
  Receive Date: 20080314
  Receipt Date: 20080312
  Transmission Date: 20080703
  Serious: Yes (Death, Life-Threatening, Hospitalization)
  Sender: FDA-Public Use
  Company Number: PE-BRISTOL-MYERS SQUIBB COMPANY-13477492

PATIENT
  Age: 52 Year
  Sex: Male

DRUGS (7)
  1. CISPLATIN [Suspect]
     Indication: GASTRIC CANCER
     Dosage: CYCLE 1-2 STARTED ON 10/APR/2006-N/I.
     Route: 041
     Dates: start: 20060605, end: 20060605
  2. TS-1 [Suspect]
     Indication: GASTRIC CANCER
     Dosage: CYCLE 1 ON 10/APR/2006.
     Route: 048
     Dates: start: 20060605, end: 20060625
  3. GRAVOL TAB [Concomitant]
     Indication: NAUSEA
     Dosage: ALSO GIVEN SC
     Route: 048
     Dates: start: 20060626, end: 20060626
  4. GRAVOL TAB [Concomitant]
     Indication: VOMITING
     Dosage: ALSO GIVEN SC
     Route: 048
     Dates: start: 20060626, end: 20060626
  5. KETOROLAC TROMETHAMINE [Concomitant]
     Indication: PAIN
     Route: 048
     Dates: start: 20060619
  6. DEXAMETHASONE TAB [Concomitant]
     Indication: NAUSEA
     Route: 048
     Dates: start: 20060626
  7. DEXAMETHASONE TAB [Concomitant]
     Indication: VOMITING
     Route: 048
     Dates: start: 20060626

REACTIONS (6)
  - ASCITES [None]
  - BLOOD CREATININE INCREASED [None]
  - DEHYDRATION [None]
  - RESPIRATORY FAILURE [None]
  - RESPIRATORY TRACT INFECTION [None]
  - SEPSIS [None]
